FAERS Safety Report 8002822-7 (Version None)
Quarter: 2011Q4

REPORT INFORMATION
  Report Type: 
  Country: None (occurrence: None)
  Receive Date: 20111222
  Receipt Date: 20101115
  Transmission Date: 20120403
  Serious: No
  Sender: FDA-Public Use
  Company Number: US-GLAXOSMITHKLINE-A0892554A

PATIENT
  Age: 60 Year
  Sex: Male

DRUGS (5)
  1. VITAMIN B-12 [Concomitant]
  2. ASPIRIN [Concomitant]
  3. FOLIC ACID [Concomitant]
  4. AVODART [Suspect]
     Indication: BENIGN PROSTATIC HYPERPLASIA
     Dosage: .5MG PER DAY
     Route: 048
     Dates: start: 20101101
  5. SAW PALMETTO [Concomitant]

REACTIONS (1)
  - SEMEN DISCOLOURATION [None]
